FAERS Safety Report 8234838-X (Version None)
Quarter: 2012Q1

REPORT INFORMATION
  Report Type: 
  Country: None (occurrence: None)
  Receive Date: 20120326
  Receipt Date: 20120320
  Transmission Date: 20120608
  Serious: Yes (Other)
  Sender: FDA-Public Use
  Company Number: US-FRI-1000029218

PATIENT
  Age: 85 Year
  Sex: Female

DRUGS (1)
  1. TEFLARO [Suspect]
     Indication: CELLULITIS

REACTIONS (1)
  - PANCYTOPENIA [None]
